FAERS Safety Report 22137282 (Version 1)
Quarter: 2023Q1

REPORT INFORMATION
  Report Type: Spontaneous
  Country: IT (occurrence: IT)
  Receive Date: 20230325
  Receipt Date: 20230325
  Transmission Date: 20230417
  Serious: Yes (Other)
  Sender: FDA-Public Use
  Company Number: IT-ROCHE-3304475

PATIENT
  Age: 72 Year
  Sex: Male

DRUGS (9)
  1. LENALIDOMIDE [Suspect]
     Active Substance: LENALIDOMIDE
     Indication: Lymphoma transformation
     Dosage: 4TH LINE SYSTEMIC TREATMENT, R-LENALIDOMIDE
     Route: 065
     Dates: start: 20210802, end: 20210808
  2. BENDAMUSTINE [Suspect]
     Active Substance: BENDAMUSTINE
     Indication: Lymphoma transformation
     Dosage: UNK, (3RD LINE SYSTEMIC TREATMENT, R-BENDA)
     Route: 065
     Dates: start: 20120130, end: 20120412
  3. EPIRUBICIN [Suspect]
     Active Substance: EPIRUBICIN
     Indication: Lymphoma transformation
     Dosage: UNK, (2ND  LINE SYSTEMIC TREATMENT, R-MINI IEV +AUTO SCT (BEAM))
     Route: 065
     Dates: start: 20100812, end: 20101226
  4. RITUXIMAB [Suspect]
     Active Substance: RITUXIMAB
     Indication: Lymphoma transformation
     Dosage: UNK (1ST LINE SYSTEMIC TREATMENT, R-FN + ZEVALLIN)
     Route: 065
     Dates: start: 20080421, end: 20081009
  5. RITUXIMAB [Suspect]
     Active Substance: RITUXIMAB
     Dosage: UNK, (2ND  LINE SYSTEMIC TREATMENT, R-MINI IEV +AUTO SCT (BEAM))
     Route: 065
     Dates: start: 20100812, end: 20101226
  6. RITUXIMAB [Suspect]
     Active Substance: RITUXIMAB
     Dosage: UNK (3RD LINE SYSTEMIC TREATMENT, R-BENDA)
     Route: 065
     Dates: start: 20120130, end: 20120412
  7. RITUXIMAB [Suspect]
     Active Substance: RITUXIMAB
     Dosage: UNK
     Route: 065
     Dates: start: 20210802, end: 20210808
  8. ETOPOSIDE [Suspect]
     Active Substance: ETOPOSIDE
  9. IFOSFAMIDE [Suspect]
     Active Substance: IFOSFAMIDE

REACTIONS (2)
  - Follicular lymphoma [Unknown]
  - Off label use [Unknown]
